FAERS Safety Report 6533976-7 (Version None)
Quarter: 2010Q1

REPORT INFORMATION
  Report Type: 
  Country: None (occurrence: None)
  Receive Date: 20100112
  Receipt Date: 20100108
  Transmission Date: 20100710
  Serious: Yes (Death)
  Sender: FDA-Public Use
  Company Number: GB-ROCHE-476689

PATIENT
  Sex: Male
  Weight: 70.4 kg

DRUGS (10)
  1. CAPECITABINE [Suspect]
     Indication: COLORECTAL CANCER
     Dosage: FOR 14 DAYS EVERY THREE WEEK CYCLE.
     Route: 048
     Dates: start: 20061212, end: 20061220
  2. FOLIC ACID [Suspect]
     Indication: DRUG USE FOR UNKNOWN INDICATION
     Route: 048
  3. LOPERAMIDE [Suspect]
     Indication: DIARRHOEA
     Dosage: PRN
     Route: 048
     Dates: start: 20061219
  4. CODEINE PHOSPHATE [Suspect]
     Indication: DIARRHOEA
     Dosage: PRN.
     Route: 048
     Dates: start: 20061223
  5. FERROUS SULFATE TAB [Concomitant]
     Route: 048
     Dates: start: 20020101
  6. DOMPERIDONE [Concomitant]
     Route: 048
     Dates: start: 20061212
  7. CALCICHEW D3 FORTE [Concomitant]
     Route: 048
  8. LANSOPRAZOLE [Concomitant]
     Route: 048
     Dates: start: 20040101
  9. ALBUTEROL [Concomitant]
     Indication: ASTHMA
  10. SERETIDE [Concomitant]

REACTIONS (14)
  - ACUTE LEFT VENTRICULAR FAILURE [None]
  - ALVEOLITIS FIBROSING [None]
  - AORTIC ARTERIOSCLEROSIS [None]
  - ARTERIOSCLEROSIS CORONARY ARTERY [None]
  - ASPIRATION [None]
  - CALCINOSIS [None]
  - CONSTIPATION [None]
  - DIARRHOEA [None]
  - HEPATIC NEOPLASM [None]
  - IDIOPATHIC PULMONARY FIBROSIS [None]
  - OBSTRUCTION [None]
  - PERITONEAL ADHESIONS [None]
  - PNEUMONIA [None]
  - PULMONARY OEDEMA [None]
